FAERS Safety Report 8889402 (Version 1)
Quarter: 2012Q4

REPORT INFORMATION
  Report Type: Spontaneous
  Country: US (occurrence: None)
  Receive Date: 20121102
  Receipt Date: 20121102
  Transmission Date: 20130627
  Serious: No
  Sender: FDA-Public Use
  Company Number: None

PATIENT
  Age: 43 Year
  Sex: Female
  Weight: 95.26 kg

DRUGS (2)
  1. TORADOL [Suspect]
     Indication: BACK PAIN
     Route: 030
     Dates: start: 20121031, end: 20121101
  2. TORADOL [Suspect]
     Route: 048

REACTIONS (3)
  - Oropharyngeal pain [None]
  - Cough [None]
  - Dyspnoea [None]
